FAERS Safety Report 22635943 (Version 3)
Quarter: 2025Q4

REPORT INFORMATION
  Report Type: Report from Study
  Country: US (occurrence: US)
  Receive Date: 20230623
  Receipt Date: 20251212
  Transmission Date: 20260118
  Serious: Yes (Other)
  Sender: ABBVIE
  Company Number: US-ABBVIE-5288313

PATIENT
  Sex: Female

DRUGS (1)
  1. HUMIRA [Suspect]
     Active Substance: ADALIMUMAB
     Indication: Rheumatoid arthritis
     Dosage: FORM STRENGTH-40 MG, CITRATE FREE
     Route: 058
     Dates: start: 20000201

REACTIONS (4)
  - Hip arthroplasty [Recovering/Resolving]
  - Fall [Recovering/Resolving]
  - Wrist fracture [Recovering/Resolving]
  - Pain [Not Recovered/Not Resolved]
